FAERS Safety Report 11234942 (Version 1)
Quarter: 2015Q3

REPORT INFORMATION
  Report Type: Spontaneous
  Country: AU (occurrence: AU)
  Receive Date: 20150702
  Receipt Date: 20150702
  Transmission Date: 20151125
  Serious: Yes (Hospitalization)
  Sender: FDA-Public Use
  Company Number: AU-GALDERMA-AU15005297

PATIENT
  Age: 84 Year
  Sex: Male

DRUGS (1)
  1. MIRVASO [Suspect]
     Active Substance: BRIMONIDINE TARTRATE
     Indication: ROSACEA
     Dosage: 0.33%
     Route: 061
     Dates: start: 20150227

REACTIONS (5)
  - Dysarthria [Unknown]
  - Cerebrovascular accident [Unknown]
  - Anaphylactoid reaction [Unknown]
  - Confusional state [Unknown]
  - Eczema [Unknown]

NARRATIVE: CASE EVENT DATE: 20150227
